FAERS Safety Report 6148359-1 (Version None)
Quarter: 2009Q2

REPORT INFORMATION
  Report Type: 
  Country: None (occurrence: None)
  Receive Date: 20090406
  Receipt Date: 20090330
  Transmission Date: 20091009
  Serious: Yes (Other)
  Sender: FDA-Public Use
  Company Number: 231609

PATIENT
  Age: 73 Year
  Sex: Female

DRUGS (1)
  1. HEPARIN SODIUM INJ [Suspect]
     Indication: ANTICOAGULANT THERAPY

REACTIONS (10)
  - CARDIAC MYXOMA [None]
  - HAEMORRHAGIC INFARCTION [None]
  - HEPARIN-INDUCED THROMBOCYTOPENIA [None]
  - IIIRD NERVE PARALYSIS [None]
  - IVTH NERVE PARALYSIS [None]
  - NEURILEMMOMA [None]
  - THROMBOCYTOPENIA [None]
  - TUMOUR HAEMORRHAGE [None]
  - VENOUS THROMBOSIS [None]
  - VITH NERVE PARALYSIS [None]
